FAERS Safety Report 8926483 (Version 1)
Quarter: 2012Q4

REPORT INFORMATION
  Report Type: 
  Country: JP (occurrence: JP)
  Receive Date: 20121127
  Receipt Date: 20121127
  Transmission Date: 20130627
  Serious: Yes (Death, Other)
  Sender: FDA-Public Use
  Company Number: JP-ELI_LILLY_AND_COMPANY-JP201211001804

PATIENT
  Age: 71 Year
  Sex: Male

DRUGS (1)
  1. ALIMTA [Suspect]

REACTIONS (2)
  - Febrile neutropenia [Fatal]
  - Gastrointestinal disorder [Unknown]
